FAERS Safety Report 9716200 (Version 1)
Quarter: 2013Q4

REPORT INFORMATION
  Report Type: Spontaneous
  Country: US (occurrence: None)
  Receive Date: 20131126
  Receipt Date: 20131126
  Transmission Date: 20140711
  Serious: Yes (Death)
  Sender: FDA-Public Use
  Company Number: None

PATIENT
  Age: 74 Year
  Sex: Male
  Weight: 116.6 kg

DRUGS (1)
  1. DEXTROSE/HEPARIN [Suspect]
     Indication: SURGERY
     Route: 042
     Dates: start: 20131031, end: 20131115

REACTIONS (4)
  - Thrombocytopenia [None]
  - Pulmonary embolism [None]
  - Cardio-respiratory arrest [None]
  - Cardiac tamponade [None]
